FAERS Safety Report 5010632-8 (Version None)
Quarter: 2006Q2

REPORT INFORMATION
  Report Type: 
  Country: None (occurrence: None)
  Receive Date: 20060515
  Receipt Date: 20060426
  Transmission Date: 20061013
  Serious: Yes (Hospitalization)
  Sender: FDA-Public Use
  Company Number: A06-014

PATIENT
  Age: 44 Year
  Sex: Female
  Weight: 136.5327 kg

DRUGS (1)
  1. ALLERGENIC EXTRACT, MITE  MIXED [Suspect]
     Dosage: SUB CU
     Route: 058

REACTIONS (1)
  - BLOOD PRESSURE DECREASED [None]
